FAERS Safety Report 16038398 (Version 1)
Quarter: 2019Q1

REPORT INFORMATION
  Report Type: Spontaneous
  Country: GB (occurrence: GB)
  Receive Date: 20190305
  Receipt Date: 20190305
  Transmission Date: 20190418
  Serious: Yes (Hospitalization)
  Sender: FDA-Public Use
  Company Number: GB-MYLANLABS-2019M1018622

PATIENT
  Age: 32 Year
  Sex: Male

DRUGS (2)
  1. CLOZARIL [Suspect]
     Active Substance: CLOZAPINE
     Dosage: 6200 MILLIGRAM
     Route: 048
     Dates: start: 20190225
  2. CLOZARIL [Suspect]
     Active Substance: CLOZAPINE
     Indication: SCHIZOPHRENIA
     Dosage: UNK
     Route: 048
     Dates: start: 20090909

REACTIONS (6)
  - Intentional overdose [Unknown]
  - Dysarthria [Unknown]
  - Somnolence [Unknown]
  - Fall [Unknown]
  - Vomiting [Unknown]
  - Contusion [Unknown]

NARRATIVE: CASE EVENT DATE: 201902
